FAERS Safety Report 6411876-0 (Version None)
Quarter: 2009Q4

REPORT INFORMATION
  Report Type: 
  Country: None (occurrence: None)
  Receive Date: 20091023
  Receipt Date: 20091015
  Transmission Date: 20100525
  Serious: Yes (Other)
  Sender: FDA-Public Use
  Company Number: ES-ASTRAZENECA-2009SE21394

PATIENT
  Age: 70 Year
  Sex: Male

DRUGS (8)
  1. RILAST FORTE [Suspect]
     Indication: BRONCHOSPASM
     Dosage: 320 UG
     Route: 055
     Dates: start: 20090730, end: 20090806
  2. TAMIFLU [Suspect]
     Indication: INFLUENZA
     Route: 048
     Dates: start: 20090730, end: 20090804
  3. TAVANIC [Suspect]
     Indication: CHRONIC OBSTRUCTIVE PULMONARY DISEASE
     Route: 048
     Dates: start: 20090730, end: 20090804
  4. ATROVENT [Concomitant]
     Indication: BRONCHOSPASM
     Dates: start: 20090730, end: 20090730
  5. LEVOTUSS [Concomitant]
     Indication: COUGH
     Dates: start: 20090730, end: 20090804
  6. OMNIC [Concomitant]
     Indication: BENIGN PROSTATIC HYPERPLASIA
  7. QUIRALAM [Concomitant]
     Indication: INFLUENZA
     Dates: start: 20090730, end: 20090801
  8. VENTOLIN [Concomitant]
     Indication: BRONCHOSPASM
     Dates: start: 20090730, end: 20090730

REACTIONS (4)
  - ARTHRALGIA [None]
  - DIZZINESS [None]
  - MUSCLE RIGIDITY [None]
  - NAUSEA [None]
